FAERS Safety Report 23175127 (Version 2)
Quarter: 2023Q4

REPORT INFORMATION
  Report Type: Spontaneous
  Country: JP (occurrence: JP)
  Receive Date: 20231112
  Receipt Date: 20231225
  Transmission Date: 20240110
  Serious: Yes (Other)
  Sender: FDA-Public Use
  Company Number: JP-TAKEDA-2023TJP014789

PATIENT
  Age: 25 Year
  Sex: Male

DRUGS (1)
  1. AMOXICILLIN\CLARITHROMYCIN\VONOPRAZAN FUMURATE [Suspect]
     Active Substance: AMOXICILLIN\CLARITHROMYCIN\VONOPRAZAN FUMURATE
     Indication: Helicobacter infection
     Dosage: UNK
     Route: 048

REACTIONS (2)
  - Duodenal ulcer [Unknown]
  - Gastric ulcer [Unknown]

NARRATIVE: CASE EVENT DATE: 20231108
